FAERS Safety Report 8207528-7 (Version None)
Quarter: 2012Q1

REPORT INFORMATION
  Report Type: 
  Country: None (occurrence: None)
  Receive Date: 20120314
  Receipt Date: 20120305
  Transmission Date: 20120608
  Serious: Yes (Life-Threatening, Hospitalization)
  Sender: FDA-Public Use
  Company Number: DE-BRISTOL-MYERS SQUIBB COMPANY-16447047

PATIENT
  Age: 58 Year
  Sex: Male

DRUGS (4)
  1. METFORMIN HCL [Suspect]
     Route: 048
     Dates: start: 20110401, end: 20110615
  2. RAMIPRIL [Concomitant]
     Dosage: 1DF=5/25;RAMIPRIL-5MG,HYDROCHLOROTHIAZIDE:25MG.
     Route: 048
     Dates: start: 20110615
  3. VENLAFAXINE HCL [Suspect]
     Route: 048
     Dates: start: 20110607, end: 20110615
  4. AMLODIPINE [Concomitant]
     Route: 048
     Dates: start: 20110615

REACTIONS (3)
  - INAPPROPRIATE ANTIDIURETIC HORMONE SECRETION [None]
  - HYPOKALAEMIA [None]
  - HYPONATRAEMIA [None]
